FAERS Safety Report 11079001 (Version 2)
Quarter: 2015Q2

REPORT INFORMATION
  Report Type: Report from Study
  Country: US (occurrence: US)
  Receive Date: 20150430
  Receipt Date: 20150515
  Transmission Date: 20150821
  Serious: Yes (Hospitalization)
  Sender: FDA-Public Use
  Company Number: US-PFIZER INC-2003142122US

PATIENT
  Age: 73 Year
  Sex: Male
  Weight: 81.8 kg

DRUGS (2)
  1. ALL OTHER THERAPEUTIC PRODUCTS [Suspect]
     Active Substance: UNSPECIFIED INGREDIENT
     Indication: THROMBOCYTOPENIA
     Dosage: 1 IU, SINGLE
     Route: 042
     Dates: start: 20030112, end: 20030113
  2. SUNITINIB MALATE [Suspect]
     Active Substance: SUNITINIB MALATE
     Indication: COLORECTAL CANCER METASTATIC
     Dosage: 50 MG, ONCE DAILY, CYCLIC
     Route: 048
     Dates: start: 20020801, end: 20030108

REACTIONS (3)
  - Thrombotic thrombocytopenic purpura [Recovered/Resolved]
  - Haemolytic uraemic syndrome [Not Recovered/Not Resolved]
  - Respiratory distress [Recovered/Resolved]

NARRATIVE: CASE EVENT DATE: 20021209
